FAERS Safety Report 12111124 (Version 1)
Quarter: 2016Q1

REPORT INFORMATION
  Report Type: Spontaneous
  Country: US (occurrence: US)
  Receive Date: 20160224
  Receipt Date: 20160224
  Transmission Date: 20160526
  Serious: No
  Sender: FDA-Public Use
  Company Number: US-JAZZ-2015-US-008708

PATIENT
  Age: 52 Year
  Sex: Female

DRUGS (3)
  1. PRIALT [Suspect]
     Active Substance: ZICONOTIDE ACETATE
     Indication: PAIN
     Dosage: 0.05 ?G, QH
     Route: 037
     Dates: start: 201505, end: 201505
  2. PRIALT [Suspect]
     Active Substance: ZICONOTIDE ACETATE
     Dosage: UNK ?G, QH
     Route: 037
     Dates: start: 2015
  3. PRIALT [Suspect]
     Active Substance: ZICONOTIDE ACETATE
     Dosage: 0.075 ?G, QH
     Route: 037
     Dates: start: 201505

REACTIONS (2)
  - Aphasia [Unknown]
  - Ataxia [Unknown]

NARRATIVE: CASE EVENT DATE: 2015
